FAERS Safety Report 5028081-5 (Version None)
Quarter: 2006Q2

REPORT INFORMATION
  Report Type: 
  Country: None (occurrence: None)
  Receive Date: 20060613
  Receipt Date: 20060601
  Transmission Date: 20061013
  Serious: Yes (Other)
  Sender: FDA-Public Use
  Company Number: 200613793BWH

PATIENT
  Age: 50 Year
  Sex: Male

DRUGS (3)
  1. CIPROFLOXACIN HCL [Suspect]
     Dosage: 500 MG, BID, ORAL
     Route: 048
     Dates: start: 19980101
  2. CIPRO XR [Suspect]
     Dosage: 1000 MG, QD, ORAL
     Route: 048
     Dates: start: 20040401, end: 20040101
  3. NEURONTIN [Concomitant]

REACTIONS (17)
  - ANGIONEUROTIC OEDEMA [None]
  - ARTHRALGIA [None]
  - ARTHRITIS [None]
  - ARTHROPOD BITE [None]
  - DRUG EFFECT DECREASED [None]
  - ERYTHEMA MULTIFORME [None]
  - FACE OEDEMA [None]
  - GUN SHOT WOUND [None]
  - INSOMNIA [None]
  - MUSCLE RUPTURE [None]
  - MYALGIA [None]
  - NAIL DISORDER [None]
  - PAIN [None]
  - PANIC ATTACK [None]
  - RASH GENERALISED [None]
  - RECTAL HAEMORRHAGE [None]
  - TENDON RUPTURE [None]
